FAERS Safety Report 4714170-9 (Version None)
Quarter: 2005Q3

REPORT INFORMATION
  Report Type: 
  Country: None (occurrence: None)
  Receive Date: 20050714
  Receipt Date: 20040212
  Transmission Date: 20060218
  Serious: Yes (Death, Hospitalization)
  Sender: FDA-Public Use
  Company Number: NO-AMGEN-US066896

PATIENT
  Sex: Female

DRUGS (6)
  1. ENBREL [Suspect]
     Indication: RHEUMATOID ARTHRITIS
     Route: 058
     Dates: start: 20010601, end: 20031220
  2. ARAVA [Suspect]
     Dates: start: 20031001, end: 20031223
  3. PREDNISOLONE [Concomitant]
  4. LEVAXIN [Concomitant]
  5. COZAAR [Concomitant]
  6. METHENAMINE HIPPURATE [Concomitant]

REACTIONS (4)
  - DEHYDRATION [None]
  - GUILLAIN-BARRE SYNDROME [None]
  - PNEUMONIA [None]
  - POLYNEUROPATHY [None]
